FAERS Safety Report 8545269-7 (Version None)
Quarter: 2012Q3

REPORT INFORMATION
  Report Type: 
  Country: None (occurrence: None)
  Receive Date: 20120727
  Receipt Date: 20120719
  Transmission Date: 20120928
  Serious: Yes (Hospitalization, Other)
  Sender: FDA-Public Use
  Company Number: NL-BAXTER-2012BAX006371

PATIENT
  Sex: Male

DRUGS (24)
  1. PHYSIOSOL IN PLASTIC CONTAINER [Suspect]
     Route: 033
     Dates: start: 20100916
  2. PHYSIONEAL 40 GLUCOSE 3.86% W/V / 38.6 MG/ML [Suspect]
  3. CINACALCET HYDROCHLORIDE [Concomitant]
     Route: 048
     Dates: start: 20120328
  4. OMEPRAZOLE [Concomitant]
     Route: 048
     Dates: start: 20090422
  5. INHIBIN                            /00508201/ [Concomitant]
     Dosage: AS NEEDED
     Route: 048
     Dates: start: 20110618
  6. MAGNESIUM HYDROXIDE TAB [Concomitant]
     Route: 048
     Dates: start: 20110511
  7. ARANESP [Concomitant]
     Dosage: WEEKLY
     Route: 058
     Dates: start: 20120509
  8. CALCIUM CARBONATE [Concomitant]
     Dosage: 1.25 GM
     Route: 048
     Dates: start: 20120223
  9. MULTIVITAMIN PRO CAPD [Concomitant]
     Dosage: DAILY
     Route: 065
     Dates: start: 20080710
  10. PHYSIOSOL IN PLASTIC CONTAINER [Suspect]
  11. PHYSIONEAL 40 GLUCOSE 3.86% W/V / 38.6 MG/ML [Suspect]
     Route: 033
     Dates: start: 20100916
  12. MUPIROCIN [Concomitant]
     Indication: ANTIBIOTIC THERAPY
     Route: 003
     Dates: start: 20120514
  13. ALFACALCIDOL [Concomitant]
     Route: 048
     Dates: start: 20110803
  14. ACETYLSAL ACID W/ASCOR ACID /CAFFEI /GUAIFEN [Concomitant]
     Route: 048
     Dates: start: 20090325
  15. EXTRANEAL [Suspect]
     Route: 033
     Dates: start: 20100916, end: 20120514
  16. TOLBUTAMIDE [Concomitant]
     Dosage: 250MG
     Route: 065
     Dates: start: 20120328
  17. FINASTERIDE [Concomitant]
     Route: 048
     Dates: start: 20120222
  18. LANTHANUM CARBONATE [Concomitant]
     Route: 048
     Dates: start: 20110905
  19. FERROUS FUMARATE [Concomitant]
     Route: 048
     Dates: start: 20110224
  20. GABAPENTIN [Concomitant]
     Route: 048
     Dates: start: 20110114
  21. SORBISTERIT [Concomitant]
     Dosage: DAILY
     Route: 003
     Dates: start: 20110223
  22. ETHANOL [Concomitant]
     Dosage: 90% W/GLYCEROL 85% FOUR TIMES DAILY
     Route: 003
     Dates: start: 20090905
  23. EXTRANEAL [Suspect]
     Route: 033
     Dates: start: 20120523
  24. SIMVASTATIN [Concomitant]
     Route: 048
     Dates: start: 20120308

REACTIONS (4)
  - PERITONITIS BACTERIAL [None]
  - NONINFECTIOUS PERITONITIS [None]
  - PNEUMONIA [None]
  - UROSEPSIS [None]
